FAERS Safety Report 9641288 (Version 2)
Quarter: 2013Q4

REPORT INFORMATION
  Report Type: Report from Study
  Country: US (occurrence: US)
  Receive Date: 20131023
  Receipt Date: 20131023
  Transmission Date: 20140711
  Serious: Yes (Death)
  Sender: FDA-Public Use
  Company Number: US-ROCHE-1286187

PATIENT
  Age: 62 Year
  Sex: Male
  Weight: 77.7 kg

DRUGS (3)
  1. RIBAVIRIN [Suspect]
     Indication: CHRONIC HEPATITIS C
     Dosage: 2 DF IN THE MORNING AND 1 DF IN THE EVENING
     Route: 048
     Dates: start: 201307, end: 20130926
  2. BOCEPREVIR [Suspect]
     Indication: CHRONIC HEPATITIS C
     Dosage: DOSE: 4 CAPSULE
     Route: 048
     Dates: end: 20130926
  3. PEGINTERFERON ALFA-2B [Suspect]
     Indication: CHRONIC HEPATITIS C
     Route: 058
     Dates: start: 201307, end: 20130926

REACTIONS (2)
  - Lobar pneumonia [Fatal]
  - Septic shock [Fatal]
